FAERS Safety Report 11614980 (Version 4)
Quarter: 2017Q3

REPORT INFORMATION
  Report Type: Report from Study
  Country: GB (occurrence: GB)
  Receive Date: 20151009
  Receipt Date: 20170724
  Transmission Date: 20171127
  Serious: Yes (Hospitalization, Other)
  Sender: FDA-Public Use
  Company Number: GB-ACCORD-034147

PATIENT
  Age: 71 Year
  Sex: Female
  Weight: 66.8 kg

DRUGS (15)
  1. FUROSEMIDE. [Concomitant]
     Active Substance: FUROSEMIDE
     Indication: PULMONARY ARTERIAL HYPERTENSION
     Dates: start: 20150427
  2. ALLOPURINOL/ALLOPURINOL SODIUM [Concomitant]
     Active Substance: ALLOPURINOL SODIUM
     Indication: GOUT
     Dates: start: 20150601
  3. TINZAPARIN/TINZAPARIN SODIUM [Concomitant]
     Indication: PROPHYLAXIS
     Dosage: 3500 UNITS TOTAL DAILY DOSE
  4. TREPROSTINIL [Concomitant]
     Active Substance: TREPROSTINIL
  5. CEFALEXIN [Concomitant]
     Active Substance: CEPHALEXIN
     Indication: PROPHYLAXIS
  6. NIFEDIPINE. [Suspect]
     Active Substance: NIFEDIPINE
     Indication: HYPERTENSION
     Dosage: NON-AZ PRODUCT
     Route: 065
     Dates: end: 20150704
  7. PARACETAMOL [Concomitant]
     Active Substance: ACETAMINOPHEN
     Indication: PAIN
     Dosage: 4 G TOTAL DAILY DOSE
  8. LOPERAMIDE [Concomitant]
     Active Substance: LOPERAMIDE
     Indication: DIARRHOEA
     Dosage: 16 MG TOTAL DAILY DOSE
  9. TREPROSTINIL/TREPROSTINIL SODIUM [Suspect]
     Active Substance: TREPROSTINIL
     Indication: PULMONARY ARTERIAL HYPERTENSION
     Dosage: SUSTAINED RELEASE
     Route: 048
     Dates: start: 20150112
  10. SILDENAFIL/SILDENAFIL CITRATE [Concomitant]
     Indication: PULMONARY ARTERIAL HYPERTENSION
     Dates: start: 20140522
  11. CYCLIZINE [Concomitant]
     Active Substance: CYCLIZINE
     Indication: NAUSEA
     Dosage: 150 MG TOTAL DAILY DOSE
  12. LISINOPRIL. [Suspect]
     Active Substance: LISINOPRIL
     Indication: HYPERTENSION
     Dosage: SHE ALSO RECEIVED LISINOPRIL AT 10 MG DAILY TILL 04-JUL-2015.
     Route: 048
     Dates: end: 20150610
  13. OMEPRAZOLE. [Concomitant]
     Active Substance: OMEPRAZOLE
     Indication: PROPHYLAXIS
     Dates: start: 20150219
  14. BENDROFLUMETHIAZIDE [Concomitant]
     Active Substance: BENDROFLUMETHIAZIDE
     Indication: HYPERTENSION
  15. NAPROXEN. [Suspect]
     Active Substance: NAPROXEN
     Indication: GOUT
     Dosage: NON-AZ PRODUCT
     Route: 065
     Dates: start: 20150624, end: 20150703

REACTIONS (4)
  - Nephropathy toxic [None]
  - Dizziness [Unknown]
  - Drug ineffective [Unknown]
  - Acute kidney injury [Recovered/Resolved]

NARRATIVE: CASE EVENT DATE: 20150701
